FAERS Safety Report 7213279-8 (Version None)
Quarter: 2010Q4

REPORT INFORMATION
  Report Type: 
  Country: None (occurrence: None)
  Receive Date: 20101229
  Receipt Date: 20101213
  Transmission Date: 20110411
  Serious: Yes (Hospitalization)
  Sender: FDA-Public Use
  Company Number: 2010005401

PATIENT
  Age: 72 Year
  Sex: Female

DRUGS (1)
  1. TARCEVA (ERLOTINIB) (TABLET) (ERLOTINIB) [Suspect]
     Indication: LUNG NEOPLASM MALIGNANT
     Dosage: (150 MG, DAILY), ORAL
     Route: 048
     Dates: start: 20101117

REACTIONS (1)
  - GALLBLADDER DISORDER [None]
